FAERS Safety Report 24760423 (Version 1)
Quarter: 2024Q4

REPORT INFORMATION
  Report Type: Spontaneous
  Country: US (occurrence: US)
  Receive Date: 20241220
  Receipt Date: 20241220
  Transmission Date: 20250115
  Serious: Yes (Hospitalization, Other)
  Sender: DR REDDYS
  Company Number: US-DRL-USA-SPO/USA/24/0018705

PATIENT
  Age: 37 Year
  Sex: Male
  Weight: 113.3 kg

DRUGS (1)
  1. CLOZAPINE [Suspect]
     Active Substance: CLOZAPINE
     Indication: Product used for unknown indication
     Route: 065
     Dates: start: 20241121, end: 20241204

REACTIONS (4)
  - Intentional self-injury [Unknown]
  - Self-destructive behaviour [Unknown]
  - Aggression [Unknown]
  - Product dispensing error [Unknown]
